FAERS Safety Report 19509391 (Version 3)
Quarter: 2023Q4

REPORT INFORMATION
  Report Type: Spontaneous
  Country: AT (occurrence: AT)
  Receive Date: 20210708
  Receipt Date: 20231101
  Transmission Date: 20240110
  Serious: Yes (Hospitalization)
  Sender: FDA-Public Use
  Company Number: NVSC2021AT146312

PATIENT
  Age: 78 Year
  Sex: Female
  Weight: 58 kg

DRUGS (30)
  1. LETROZOLE [Suspect]
     Active Substance: LETROZOLE
     Indication: Breast cancer metastatic
     Dosage: 2.5 MG, QD
     Route: 065
     Dates: start: 20181029
  2. PACLITAXEL [Suspect]
     Active Substance: PACLITAXEL
     Indication: Breast cancer metastatic
     Dosage: 129.61 MG, QW
     Route: 065
     Dates: start: 20180810, end: 20180824
  3. PACLITAXEL [Suspect]
     Active Substance: PACLITAXEL
     Dosage: 279.32 MG, QW
     Route: 065
     Dates: start: 20180921, end: 20180921
  4. PACLITAXEL [Suspect]
     Active Substance: PACLITAXEL
     Dosage: UNK
     Route: 065
  5. PACLITAXEL [Suspect]
     Active Substance: PACLITAXEL
     Dosage: 127.69 MG, QW
     Route: 065
     Dates: start: 20180928, end: 20181019
  6. TRASTUZUMAB [Suspect]
     Active Substance: TRASTUZUMAB
     Indication: Breast cancer metastatic
     Dosage: 464 MG, EVERY 3 WEEKS (MOST RECENT DOSE PRIOR TO THE EVENT: 21/SEP/2018)
     Route: 065
     Dates: start: 20180810, end: 20180810
  7. TRASTUZUMAB [Suspect]
     Active Substance: TRASTUZUMAB
     Dosage: 336 MG, EVERY 3 WEEKS
     Route: 065
     Dates: start: 20180921, end: 20181106
  8. PERTUZUMAB [Suspect]
     Active Substance: PERTUZUMAB
     Indication: Breast cancer metastatic
     Dosage: 840 MG, EVERY 3 WEEKS
     Route: 065
     Dates: start: 20180810, end: 20180810
  9. PERTUZUMAB [Suspect]
     Active Substance: PERTUZUMAB
     Dosage: 420 MG, EVERY 3 WEEKS
     Route: 065
     Dates: start: 20180921, end: 20190201
  10. HERCEPTIN [Suspect]
     Active Substance: TRASTUZUMAB
     Indication: Breast cancer
     Dosage: 464 MG (MOST RECENT DOSE PRIOR TO THE EVENT: 21 SEP 2021; FREQUENCY: EVERY 3 WEEKS)
     Route: 065
     Dates: start: 20180810, end: 20180810
  11. DENOSUMAB [Suspect]
     Active Substance: DENOSUMAB
     Indication: HER2 positive breast cancer
     Dosage: 120 MG, Q4W
     Route: 065
     Dates: start: 20181012
  12. DEXABENE [Concomitant]
     Indication: Product used for unknown indication
     Dosage: 20 MG, 1 PER WEEK
     Route: 065
     Dates: start: 20180810, end: 20181019
  13. ACEMIN [Concomitant]
     Indication: Product used for unknown indication
     Dosage: UNK
     Route: 065
  14. RANITIDINE HYDROCHLORIDE [Concomitant]
     Active Substance: RANITIDINE HYDROCHLORIDE
     Indication: Product used for unknown indication
     Dosage: UNK
     Route: 065
     Dates: start: 20180810, end: 20181019
  15. RANITIDINE HYDROCHLORIDE [Concomitant]
     Active Substance: RANITIDINE HYDROCHLORIDE
     Dosage: 4 MG
     Route: 065
     Dates: start: 20180810
  16. XGEVA [Concomitant]
     Active Substance: DENOSUMAB
     Indication: Product used for unknown indication
     Dosage: UNK
     Route: 065
     Dates: start: 20181012
  17. METOPROLOL [Concomitant]
     Active Substance: METOPROLOL
     Indication: Product used for unknown indication
     Dosage: 4.75 MG, QD
     Route: 065
  18. KYTRIL [Concomitant]
     Active Substance: GRANISETRON HYDROCHLORIDE
     Indication: Product used for unknown indication
     Dosage: 3 MG
     Route: 065
     Dates: start: 20180810, end: 20181019
  19. ASPIRIN [Concomitant]
     Active Substance: ASPIRIN
     Indication: Product used for unknown indication
     Dosage: UNK
     Route: 065
     Dates: start: 20181012, end: 20181115
  20. ASPIRIN [Concomitant]
     Active Substance: ASPIRIN
     Dosage: 100 MG, QD
     Route: 065
     Dates: start: 20181012
  21. AMLODIPINE [Concomitant]
     Active Substance: AMLODIPINE BESYLATE
     Indication: Product used for unknown indication
     Dosage: 5 MG
     Route: 065
     Dates: start: 201812
  22. VITAMINS WITH MINERALS [Concomitant]
     Active Substance: MINERALS\VITAMINS
     Indication: Product used for unknown indication
     Dosage: UNK
     Route: 065
     Dates: start: 20181029
  23. RIVASTIGMINE [Concomitant]
     Active Substance: RIVASTIGMINE
     Indication: Product used for unknown indication
     Dosage: UNK
     Route: 065
  24. GLUCOPHAGE [Concomitant]
     Active Substance: METFORMIN HYDROCHLORIDE
     Indication: Diabetes mellitus
     Dosage: 500 MG
     Route: 065
  25. LEVOCETIRIZINE DIHYDROCHLORIDE [Concomitant]
     Active Substance: LEVOCETIRIZINE DIHYDROCHLORIDE
     Indication: Product used for unknown indication
     Dosage: 5 MG
     Route: 065
  26. DEXAGENTA [Concomitant]
     Indication: Product used for unknown indication
     Dosage: UNK
     Route: 065
  27. KALIORAL [Concomitant]
     Indication: Product used for unknown indication
     Dosage: UNK
     Route: 065
  28. CIPRALEX [Concomitant]
     Active Substance: ESCITALOPRAM OXALATE
     Indication: Product used for unknown indication
     Dosage: 5 MG, QD
     Route: 065
     Dates: start: 201901
  29. PANTOPRAZOLE SODIUM [Concomitant]
     Active Substance: PANTOPRAZOLE SODIUM
     Indication: Product used for unknown indication
     Dosage: 40 MG
     Route: 065
  30. CALCIUM CARBONATE\CHOLECALCIFEROL [Concomitant]
     Active Substance: CALCIUM CARBONATE\CHOLECALCIFEROL
     Indication: Product used for unknown indication
     Dosage: UNK
     Route: 065
     Dates: start: 20191230

REACTIONS (7)
  - Epistaxis [Recovered/Resolved]
  - Lymphoedema [Recovered/Resolved]
  - Anaemia [Recovered/Resolved]
  - Oedema peripheral [Recovered/Resolved]
  - Fatigue [Recovered/Resolved]
  - Nausea [Recovered/Resolved]
  - Underdose [Unknown]

NARRATIVE: CASE EVENT DATE: 20180928
